FAERS Safety Report 5799994-1 (Version None)
Quarter: 2008Q2

REPORT INFORMATION
  Report Type: 
  Country: None (occurrence: None)
  Receive Date: 20080626
  Receipt Date: 20070521
  Transmission Date: 20081010
  Serious: Yes (Disabling)
  Sender: FDA-Public Use
  Company Number: 482232

PATIENT
  Age: 59 Year
  Sex: Female
  Weight: 62.6 kg

DRUGS (1)
  1. XELODA [Suspect]
     Indication: COLORECTAL CANCER
     Dosage: 1500 MG 2 PER DAY ORAL
     Route: 048

REACTIONS (9)
  - ABASIA [None]
  - ERYTHEMA [None]
  - HAEMORRHAGE [None]
  - HYPOAESTHESIA [None]
  - LIMB INJURY [None]
  - OEDEMA PERIPHERAL [None]
  - PAIN IN EXTREMITY [None]
  - PALMAR-PLANTAR ERYTHRODYSAESTHESIA SYNDROME [None]
  - PARAESTHESIA [None]
